FAERS Safety Report 8516755-0 (Version None)
Quarter: 2012Q3

REPORT INFORMATION
  Report Type: 
  Country: None (occurrence: None)
  Receive Date: 20120706
  Receipt Date: 20120621
  Transmission Date: 20120928
  Serious: Yes (Other)
  Sender: FDA-Public Use
  Company Number: GER/AUS/12/0024864

PATIENT
  Age: 77 Year
  Sex: Female

DRUGS (7)
  1. OXYCODONE HCL [Suspect]
     Indication: CANCER PAIN
     Dosage: 50 MG, 2 IN 1 D
  2. SENNOSIDES (SENNOSIDE A+B) [Concomitant]
  3. CITALOPRAM HYDROBROMIDE [Suspect]
     Indication: DEPRESSION
     Dosage: 20 MG, 1 IN 1 D
  4. TEMAZEPAM [Concomitant]
  5. DOCUSATE (DOCUSATE) [Concomitant]
  6. ESOMEPRAZOLE MAGNESIUM [Suspect]
     Indication: PRODUCT USED FOR UNKNOWN INDICATION
     Dosage: 40 MG, 2 IN 1 D
  7. DIAZEPAM [Concomitant]

REACTIONS (3)
  - SEROTONIN SYNDROME [None]
  - DRUG INTERACTION [None]
  - RESTLESS LEGS SYNDROME [None]
